FAERS Safety Report 6573387-1 (Version None)
Quarter: 2010Q1

REPORT INFORMATION
  Report Type: 
  Country: None (occurrence: None)
  Receive Date: 20100208
  Receipt Date: 20100203
  Transmission Date: 20100710
  Serious: Yes (Death)
  Sender: FDA-Public Use
  Company Number: FR-ABBOTT-02P-056-0198334-00

PATIENT
  Age: 43 Year
  Sex: Male

DRUGS (6)
  1. ISOPTIN [Suspect]
     Indication: DRUG USE FOR UNKNOWN INDICATION
  2. SILDENAFIL CITRATE [Interacting]
     Indication: ERECTILE DYSFUNCTION
     Route: 048
  3. TRIMETAZIDINE [Concomitant]
  4. YOHIMBINE [Concomitant]
  5. BROMAZEPAM [Concomitant]
  6. TRINITRINE [Concomitant]

REACTIONS (2)
  - DEATH [None]
  - DRUG INTERACTION [None]
